FAERS Safety Report 14844583 (Version 1)
Quarter: 2018Q2

REPORT INFORMATION
  Report Type: Spontaneous
  Country: GB (occurrence: GB)
  Receive Date: 20180503
  Receipt Date: 20180503
  Transmission Date: 20180711
  Serious: Yes (Disabling)
  Sender: FDA-Public Use
  Company Number: GB-009507513-1804GBR011150

PATIENT
  Age: 76 Year
  Sex: Female
  Weight: 70 kg

DRUGS (29)
  1. METOCLOPRAMIDE. [Concomitant]
     Active Substance: METOCLOPRAMIDE
  2. TAZOCIN (PIPERACILLIN SODIUM (+) TAZOBACTAM SODIUM) [Concomitant]
     Active Substance: PIPERACILLIN SODIUM\TAZOBACTAM SODIUM
  3. DIHYDROCODEINE BITARTRATE [Concomitant]
     Active Substance: DIHYDROCODEINE BITARTRATE
  4. ACLIDINIUM BROMIDE. [Concomitant]
     Active Substance: ACLIDINIUM BROMIDE
     Route: 055
  5. FERROUS FUMARATE [Concomitant]
     Active Substance: FERROUS FUMARATE
  6. METRONIDAZOLE. [Concomitant]
     Active Substance: METRONIDAZOLE
     Dosage: INITIALLY DISCONTINUED AS THOUGHT THIS WAS THE CAUSE.
  7. CYCLIZINE HYDROCHLORIDE [Concomitant]
     Active Substance: CYCLIZINE HYDROCHLORIDE
  8. GENTAMICIN SULFATE. [Concomitant]
     Active Substance: GENTAMICIN SULFATE
     Route: 042
  9. DALTEPARIN SODIUM [Concomitant]
     Active Substance: DALTEPARIN SODIUM
     Route: 058
  10. FLOXACILLIN [Concomitant]
     Active Substance: FLUCLOXACILLIN
     Route: 042
  11. ERTAPENEM SODIUM [Suspect]
     Active Substance: ERTAPENEM SODIUM
     Indication: DEVICE RELATED INFECTION
     Dosage: 1 G, UNK
     Route: 042
     Dates: start: 20180209, end: 20180307
  12. ACIDEX (CALCIUM CARBONATE (+) SODIUM ALGINATE (+) SODIUM BICARBONATE) [Concomitant]
     Active Substance: CALCIUM CARBONATE\SODIUM ALGINATE\SODIUM BICARBONATE
  13. NITROGLYCERIN. [Concomitant]
     Active Substance: NITROGLYCERIN
  14. DOTHIEPIN HYDROCHLORIDE [Concomitant]
     Active Substance: DOTHIEPIN HYDROCHLORIDE
  15. LACTULOSE. [Concomitant]
     Active Substance: LACTULOSE
  16. RANITIDINE HYDROCHLORIDE. [Concomitant]
     Active Substance: RANITIDINE HYDROCHLORIDE
  17. KETAMINE [Concomitant]
     Active Substance: KETAMINE
  18. TEICOPLANIN [Concomitant]
     Active Substance: TEICOPLANIN
     Route: 042
  19. CLONIDINE. [Concomitant]
     Active Substance: CLONIDINE
  20. FORMOTEROL FUMARATE [Concomitant]
     Active Substance: FORMOTEROL FUMARATE
  21. ASPIRIN. [Concomitant]
     Active Substance: ASPIRIN
  22. ACETAMINOPHEN. [Concomitant]
     Active Substance: ACETAMINOPHEN
  23. ZOPICLONE [Concomitant]
     Active Substance: ZOPICLONE
  24. ATENOLOL (+) CHLORTHALIDONE [Concomitant]
     Active Substance: ATENOLOL\CHLORTHALIDONE
  25. AMOXICILLIN (+) CLAVULANATE POTASSIUM [Concomitant]
     Active Substance: AMOXICILLIN\CLAVULANATE POTASSIUM
  26. ATENOLOL. [Concomitant]
     Active Substance: ATENOLOL
  27. ONDANSETRON HYDROCHLORIDE. [Concomitant]
     Active Substance: ONDANSETRON HYDROCHLORIDE
  28. CHLORHEXIDINE HYDROCHLORIDE [Concomitant]
     Active Substance: CHLORHEXIDINE HYDROCHLORIDE
     Route: 048
  29. SANDO-K [Concomitant]
     Active Substance: POTASSIUM BICARBONATE\POTASSIUM CHLORIDE

REACTIONS (4)
  - Hypoaesthesia [Recovering/Resolving]
  - Paraesthesia [Recovering/Resolving]
  - Dizziness [Recovering/Resolving]
  - Dystonia [Recovering/Resolving]

NARRATIVE: CASE EVENT DATE: 20180221
